FAERS Safety Report 8909482 (Version 1)
Quarter: 2012Q4

REPORT INFORMATION
  Report Type: 
  Country: TH (occurrence: TH)
  Receive Date: 20121115
  Receipt Date: 20121115
  Transmission Date: 20130627
  Serious: Yes (Other)
  Sender: FDA-Public Use
  Company Number: TH-JNJFOC-20121105899

PATIENT

DRUGS (1)
  1. DOXORUBICIN [Suspect]
     Indication: NEOPLASM MALIGNANT
     Route: 042

REACTIONS (4)
  - Cardiotoxicity [Unknown]
  - Directional Doppler flow tests abnormal [Unknown]
  - N-terminal prohormone brain natriuretic peptide increased [Unknown]
  - Troponin T increased [Unknown]
